FAERS Safety Report 18394974 (Version 2)
Quarter: 2021Q2

REPORT INFORMATION
  Report Type: Spontaneous
  Country: NL (occurrence: NL)
  Receive Date: 20201016
  Receipt Date: 20210416
  Transmission Date: 20210717
  Serious: Yes (Other)
  Sender: FDA-Public Use
  Company Number: NL-PURDUE-USA-2020-0171301

PATIENT
  Sex: Female

DRUGS (23)
  1. PACLITAXEL. [Suspect]
     Active Substance: PACLITAXEL
     Dosage: UNK UNK, WEEKLY
     Route: 065
     Dates: start: 201301
  2. LEVETIRACETAM. [Suspect]
     Active Substance: LEVETIRACETAM
     Indication: PRODUCT USED FOR UNKNOWN INDICATION
     Dosage: 1000 MG, DAILY [500 MG, BID]
     Route: 048
  3. LEVETIRACETAM. [Suspect]
     Active Substance: LEVETIRACETAM
     Dosage: UNK
     Route: 065
  4. CYCLOPHOSPHAMIDE. [Suspect]
     Active Substance: CYCLOPHOSPHAMIDE
     Indication: BREAST CANCER
     Dosage: UNK
     Route: 065
     Dates: start: 200110
  5. TEGRETOL [Suspect]
     Active Substance: CARBAMAZEPINE
     Indication: EPILEPSY
     Dosage: UNK
     Route: 065
     Dates: start: 1987, end: 201408
  6. OXYCODONE HYDROCHLORIDE. [Suspect]
     Active Substance: OXYCODONE HYDROCHLORIDE
     Indication: PRODUCT USED FOR UNKNOWN INDICATION
     Dosage: 20 MG, DAILY [10 MG, BID]
     Route: 048
  7. FEMARA [Suspect]
     Active Substance: LETROZOLE
     Indication: METASTASES TO BONE
     Dosage: 2.5 MG, DAILY [2.5 MG, QD]
     Route: 065
     Dates: start: 201111
  8. FEMARA [Suspect]
     Active Substance: LETROZOLE
     Indication: METASTASES TO LIVER
  9. ERIBULIN [Suspect]
     Active Substance: ERIBULIN
     Indication: DISEASE PROGRESSION
     Dosage: UNK
     Route: 065
     Dates: start: 201705, end: 201807
  10. DEXTRAN 70 [Concomitant]
     Active Substance: DEXTRAN 70
     Indication: PRODUCT USED FOR UNKNOWN INDICATION
     Dosage: 15 ML, PRN [15 ML (VIAL), DRIP VV 2DD IN BOTH EYES WHEN NECESSARY]
     Route: 065
  11. EVEROLIMUS. [Suspect]
     Active Substance: EVEROLIMUS
     Indication: PRODUCT USED FOR UNKNOWN INDICATION
     Dosage: 10 MG, UNK [10 MG]
     Route: 065
     Dates: start: 201311
  12. EVEROLIMUS. [Suspect]
     Active Substance: EVEROLIMUS
     Dosage: 5 MG, DAILY [5 MG, QD]
     Route: 065
     Dates: start: 20130515, end: 201311
  13. ZOMETA [Suspect]
     Active Substance: ZOLEDRONIC ACID
     Indication: METASTASES TO BONE
  14. KEPPRA [Concomitant]
     Active Substance: LEVETIRACETAM
     Indication: EPILEPSY
     Dosage: UNK
     Route: 065
     Dates: start: 201408
  15. MEGESTROL [Concomitant]
     Active Substance: MEGESTROL
     Indication: PRODUCT USED FOR UNKNOWN INDICATION
     Dosage: 160 MG, DAILY [160 MG, QD]
     Route: 048
  16. EXEMESTANE. [Suspect]
     Active Substance: EXEMESTANE
     Indication: PRODUCT USED FOR UNKNOWN INDICATION
     Dosage: 25 MG, DAILY [25 MG, QD]
     Route: 065
     Dates: start: 20130515
  17. FULVESTRANT. [Suspect]
     Active Substance: FULVESTRANT
     Indication: DISEASE PROGRESSION
     Dosage: UNK
     Route: 065
     Dates: start: 20191023, end: 202004
  18. PACLITAXEL. [Suspect]
     Active Substance: PACLITAXEL
     Dosage: UNK UNK, WEEKLY
     Route: 065
     Dates: start: 201401, end: 201412
  19. PACLITAXEL. [Suspect]
     Active Substance: PACLITAXEL
     Indication: DISEASE PROGRESSION
     Dosage: UNK UNK, WEEKLY
     Route: 065
     Dates: start: 201505
  20. TAMOXIFEN [Suspect]
     Active Substance: TAMOXIFEN
     Indication: BREAST CANCER
     Dosage: UNK
     Route: 065
     Dates: start: 200110
  21. CAPECITABINE. [Suspect]
     Active Substance: CAPECITABINE
     Indication: DISEASE PROGRESSION
     Dosage: UNK
     Route: 065
     Dates: start: 201201
  22. ZOMETA [Suspect]
     Active Substance: ZOLEDRONIC ACID
     Indication: METASTASES TO LIVER
     Dosage: ONCE EVERY 4 WEEKS
     Route: 065
     Dates: start: 201111
  23. MEGACE [Concomitant]
     Active Substance: MEGESTROL ACETATE
     Indication: PRODUCT USED FOR UNKNOWN INDICATION
     Dosage: UNK
     Route: 065

REACTIONS (15)
  - Breast cancer [Unknown]
  - Endometriosis [Unknown]
  - Hepatitis [Unknown]
  - Thoracic vertebral fracture [Unknown]
  - Papillary thyroid cancer [Unknown]
  - Central nervous system lesion [Unknown]
  - Neutropenia [Unknown]
  - Palmar-plantar erythrodysaesthesia syndrome [Unknown]
  - Metastases to bone [Unknown]
  - Metastases to central nervous system [Unknown]
  - Disease progression [Unknown]
  - Metastases to liver [Unknown]
  - Pneumonia [Unknown]
  - Epilepsy [Unknown]
  - Radiculopathy [Unknown]

NARRATIVE: CASE EVENT DATE: 1995
